FAERS Safety Report 5566843-6 (Version None)
Quarter: 2007Q4

REPORT INFORMATION
  Report Type: 
  Country: None (occurrence: None)
  Receive Date: 20071214
  Receipt Date: 20071212
  Transmission Date: 20080405
  Serious: Yes (Hospitalization)
  Sender: FDA-Public Use
  Company Number: ABX37-07-0981

PATIENT
  Age: 50 Year
  Sex: Female
  Weight: 158 kg

DRUGS (7)
  1. ABRAXANE(ABRAXANE? FOR INJECTABLE SUSPENSION (PACLITAXEL PROTEIN-BOUND [Suspect]
     Indication: BREAST CANCER
     Dosage: SEE IMAGE
     Route: 042
     Dates: start: 20071015
  2. CARBOPLATIN [Suspect]
     Indication: BREAST CANCER
     Dosage: SEE IMAGE
     Route: 042
     Dates: start: 20071015
  3. HERCEPTIN [Suspect]
     Indication: BREAST CANCER
     Dosage: SEE IMAGE
     Route: 042
     Dates: start: 20071015
  4. AVASTIN [Suspect]
     Indication: BREAST CANCER
     Dosage: SEE IMAGE
     Route: 042
     Dates: start: 20071015
  5. PROTONIX [Concomitant]
  6. WELLBUTRIN [Concomitant]
  7. ASPIRIN [Concomitant]

REACTIONS (12)
  - ALPHA HAEMOLYTIC STREPTOCOCCAL INFECTION [None]
  - ATELECTASIS [None]
  - BLOOD CULTURE POSITIVE [None]
  - CHILLS [None]
  - DYSPNOEA [None]
  - GROIN ABSCESS [None]
  - HAEMOGLOBIN DECREASED [None]
  - LIP ULCERATION [None]
  - PERINEAL ABSCESS [None]
  - PYREXIA [None]
  - THROMBOCYTOPENIA [None]
  - WHITE BLOOD CELL COUNT DECREASED [None]
